FAERS Safety Report 21898510 (Version 1)
Quarter: 2023Q1

REPORT INFORMATION
  Report Type: Spontaneous
  Country: US (occurrence: None)
  Receive Date: 20230121
  Receipt Date: 20230121
  Transmission Date: 20230418
  Serious: Yes (unspecified)
  Sender: FDA-Public Use
  Company Number: None

PATIENT
  Age: 60 Year
  Sex: Male
  Weight: 72 kg

DRUGS (7)
  1. INSULIN ASPART [Suspect]
     Active Substance: INSULIN ASPART
     Indication: Type 2 diabetes mellitus
     Dosage: OTHER QUANTITY : 5 PENS;?OTHER FREQUENCY : WITH MEALS;?OTHER ROUTE : INJECTED INTO STOMACH AREA;?
     Route: 050
  2. INSULIN ASPART [Suspect]
     Active Substance: INSULIN ASPART
     Indication: Type 2 diabetes mellitus
     Dosage: OTHER QUANTITY : 5 PENS;?OTHER FREQUENCY : WITH MEALS;?OTHER ROUTE : INJECTED INTO STOMACH AREA;?
     Route: 050
  3. LISINOPRIL [Concomitant]
     Active Substance: LISINOPRIL
  4. FELODIPINE [Concomitant]
     Active Substance: FELODIPINE
  5. LANTUS [Concomitant]
     Active Substance: INSULIN GLARGINE
  6. SIMVASTATIN [Concomitant]
     Active Substance: SIMVASTATIN
  7. VITAMIN D [Concomitant]
     Active Substance: VITAMIN D NOS

REACTIONS (6)
  - Drug ineffective [None]
  - Blood glucose increased [None]
  - Thirst [None]
  - Pruritus [None]
  - Somnolence [None]
  - Chronic kidney disease [None]

NARRATIVE: CASE EVENT DATE: 20230118
